FAERS Safety Report 4522386-X (Version None)
Quarter: 2004Q4

REPORT INFORMATION
  Report Type: 
  Country: None (occurrence: None)
  Receive Date: 20041209
  Receipt Date: 19910925
  Transmission Date: 20050328
  Serious: Yes (Death)
  Sender: FDA-Public Use
  Company Number: US-GLAXOSMITHKLINE-G0008387A

PATIENT
  Age: 71 Year
  Sex: Male

DRUGS (7)
  1. CEFTAZIDIME SODIUM [Suspect]
     Indication: UROSEPSIS
     Dosage: 3G TWICE PER DAY
     Route: 042
     Dates: start: 19860101, end: 19860101
  2. GENTAMICIN SULFATE [Concomitant]
     Indication: SKIN INFECTION
     Route: 042
  3. CLINDAMYCIN HYDROCHLORIDE [Concomitant]
     Indication: SKIN INFECTION
     Route: 042
  4. AMPICILLIN [Concomitant]
     Indication: SKIN INFECTION
     Route: 042
  5. CEFOPERAZONE SODIUM [Concomitant]
     Indication: UROSEPSIS
     Route: 042
  6. PIPERACILLIN [Concomitant]
     Indication: UROSEPSIS
     Route: 042
  7. AMIKACIN SULPHATE [Concomitant]

REACTIONS (11)
  - AGITATION [None]
  - COMA [None]
  - CONFUSIONAL STATE [None]
  - DEATH [None]
  - DISORIENTATION [None]
  - ELECTROENCEPHALOGRAM ABNORMAL [None]
  - ENCEPHALOPATHY [None]
  - MULTI-ORGAN FAILURE [None]
  - MYOCLONUS [None]
  - NEUROTOXICITY [None]
  - STATUS EPILEPTICUS [None]
